FAERS Safety Report 9805968 (Version 1)
Quarter: 2014Q1

REPORT INFORMATION
  Report Type: Spontaneous
  Country: IT (occurrence: None)
  Receive Date: 20140107
  Receipt Date: 20140107
  Transmission Date: 20141002
  Serious: Yes (Other)
  Sender: FDA-Public Use
  Company Number: AUR-APL-2014-00115

PATIENT
  Age: 60 Year
  Sex: Male

DRUGS (1)
  1. TAMSULOSIN (TAMSULOSIN) [Suspect]
     Indication: PRODUCT USED FOR UNKNOWN INDICATION

REACTIONS (4)
  - Asthenia [None]
  - Dizziness [None]
  - Syncope [None]
  - Vision blurred [None]
